FAERS Safety Report 13864311 (Version 1)
Quarter: 2017Q3

REPORT INFORMATION
  Report Type: Spontaneous
  Country: GB (occurrence: GB)
  Receive Date: 20170814
  Receipt Date: 20170814
  Transmission Date: 20171127
  Serious: Yes (Hospitalization)
  Sender: FDA-Public Use
  Company Number: GB-JNJFOC-20170804014

PATIENT
  Age: 65 Year
  Weight: 75 kg

DRUGS (1)
  1. COCODAMOL [Suspect]
     Active Substance: ACETAMINOPHEN\CODEINE PHOSPHATE
     Indication: PAIN
     Dosage: 2 (UNIT NOT REPORTED), FOUR TIMES A DAY
     Route: 065

REACTIONS (6)
  - Miosis [Unknown]
  - Confusional state [Unknown]
  - Acute kidney injury [Unknown]
  - Toxicity to various agents [Recovered/Resolved]
  - Pneumonia [Unknown]
  - Hallucination [Unknown]

NARRATIVE: CASE EVENT DATE: 20170727
